FAERS Safety Report 14582296 (Version 3)
Quarter: 2018Q2

REPORT INFORMATION
  Report Type: Report from Study
  Country: US (occurrence: US)
  Receive Date: 20180228
  Receipt Date: 20180516
  Transmission Date: 20180711
  Serious: Yes (Hospitalization, Other)
  Sender: FDA-Public Use
  Company Number: US-GILEAD-2018-0321580

PATIENT
  Age: 53 Year
  Sex: Female
  Weight: 140 kg

DRUGS (3)
  1. SILDENAFIL. [Concomitant]
     Active Substance: SILDENAFIL
  2. AMBRISENTAN [Suspect]
     Active Substance: AMBRISENTAN
     Indication: PRODUCT USED FOR UNKNOWN INDICATION
     Dosage: 5 MG, UNK
     Route: 065
     Dates: start: 20171130
  3. REMODULIN [Concomitant]
     Active Substance: TREPROSTINIL

REACTIONS (8)
  - Impaired quality of life [Not Recovered/Not Resolved]
  - Fluid retention [Recovered/Resolved]
  - Clostridium difficile infection [Recovered/Resolved]
  - Renal impairment [Recovered/Resolved]
  - Oxygen saturation decreased [Recovered/Resolved]
  - Dysstasia [Not Recovered/Not Resolved]
  - Dyspnoea [Recovered/Resolved]
  - Fluid overload [Not Recovered/Not Resolved]

NARRATIVE: CASE EVENT DATE: 201712
